FAERS Safety Report 6257241-0 (Version None)
Quarter: 2009Q3

REPORT INFORMATION
  Report Type: 
  Country: None (occurrence: None)
  Receive Date: 20090706
  Receipt Date: 20090624
  Transmission Date: 20100115
  Serious: Yes (Hospitalization, Other)
  Sender: FDA-Public Use
  Company Number: PE-PFIZER INC-2009216856

PATIENT

DRUGS (6)
  1. VFEND [Suspect]
     Indication: PYREXIA
     Dosage: 200 MG, 2X/DAY
     Route: 042
     Dates: start: 20090508, end: 20090511
  2. VFEND [Suspect]
     Dosage: 200 MG, 1X/DAY
     Route: 042
     Dates: start: 20090511, end: 20090514
  3. NEURONTIN [Suspect]
     Indication: POST HERPETIC NEURALGIA
     Dosage: 300 MG, 2X/DAY
     Route: 048
     Dates: start: 20090501, end: 20090514
  4. NEXIUM [Concomitant]
     Dosage: UNK
     Route: 048
     Dates: start: 20090301, end: 20090514
  5. MEROPENEM [Concomitant]
     Dosage: UNK
     Route: 042
     Dates: start: 20090401, end: 20090514
  6. VANCOMYCIN [Concomitant]
     Dosage: UNK
     Route: 042
     Dates: start: 20090401, end: 20090514

REACTIONS (1)
  - PANCYTOPENIA [None]
